FAERS Safety Report 10063345 (Version 2)
Quarter: 2014Q2

REPORT INFORMATION
  Report Type: Spontaneous
  Country: JP (occurrence: JP)
  Receive Date: 20140407
  Receipt Date: 20140428
  Transmission Date: 20141212
  Serious: Yes (Hospitalization)
  Sender: FDA-Public Use
  Company Number: JP-B.I. PHARMACEUTICALS,INC./RIDGEFIELD-2014-BI-15190NB

PATIENT
  Age: 61 Year
  Sex: Male
  Weight: 51.5 kg

DRUGS (5)
  1. PRAZAXA [Suspect]
     Indication: ATRIAL FIBRILLATION
     Dosage: DAILY DOSE: 110MG/1TIME/2DAYS
     Route: 048
  2. NICORANDIL / NICORANDIL [Concomitant]
     Dosage: 5 MG
     Route: 065
  3. CIBENOL / CIBENZOLINE SUCCINATE [Concomitant]
     Dosage: 50 MG
     Route: 065
  4. BENIDIPINE HYDROCHLORIDE / BENIDIPINE HYDROCHLORIDE [Concomitant]
     Route: 065
  5. MAINHEART / BISOPROLOL FUMARATE [Concomitant]
     Dosage: 5 MG
     Route: 065

REACTIONS (1)
  - Cerebral infarction [Unknown]
